FAERS Safety Report 7915309-4 (Version None)
Quarter: 2011Q4

REPORT INFORMATION
  Report Type: 
  Country: None (occurrence: None)
  Receive Date: 20111115
  Receipt Date: 20111016
  Transmission Date: 20120403
  Serious: No
  Sender: FDA-Public Use
  Company Number: US-BAYER-2011-101646

PATIENT

DRUGS (1)
  1. ALEVE (CAPLET) [Suspect]
     Indication: BACK PAIN
     Dosage: 6 DF, UNK
     Route: 048
     Dates: start: 20111016

REACTIONS (2)
  - BACK PAIN [None]
  - NO ADVERSE EVENT [None]
